FAERS Safety Report 7422408-2 (Version None)
Quarter: 2011Q2

REPORT INFORMATION
  Report Type: 
  Country: None (occurrence: None)
  Receive Date: 20110419
  Receipt Date: 20110408
  Transmission Date: 20111010
  Serious: No
  Sender: FDA-Public Use
  Company Number: US-BIOGENIDEC-2011BI013562

PATIENT
  Sex: Female

DRUGS (1)
  1. TYSABRI [Suspect]
     Indication: MULTIPLE SCLEROSIS
     Route: 042
     Dates: start: 20091114

REACTIONS (6)
  - TOOTH ABSCESS [None]
  - MUSCLE FATIGUE [None]
  - MULTIPLE SCLEROSIS RELAPSE [None]
  - PAIN [None]
  - GAIT DISTURBANCE [None]
  - ENDODONTIC PROCEDURE [None]
